FAERS Safety Report 7641570-X (Version None)
Quarter: 2011Q3

REPORT INFORMATION
  Report Type: 
  Country: None (occurrence: None)
  Receive Date: 20110728
  Receipt Date: 20110715
  Transmission Date: 20111222
  Serious: Yes (Hospitalization, Other)
  Sender: FDA-Public Use
  Company Number: US-ELI_LILLY_AND_COMPANY-US201107006050

PATIENT
  Sex: Female

DRUGS (16)
  1. COLACE [Concomitant]
  2. XOPENEX [Concomitant]
     Route: 055
  3. FORTEO [Suspect]
     Indication: OSTEOPOROSIS
     Dosage: 20 UG, QD
     Dates: start: 20110201, end: 20110301
  4. PULMICORT [Concomitant]
  5. ZOCOR [Concomitant]
  6. NOVOLOG [Concomitant]
  7. LANTUS [Concomitant]
  8. ATROVENT [Concomitant]
  9. ARICEPT [Concomitant]
  10. LEXAPRO [Concomitant]
  11. OMEPRAZOLE [Concomitant]
  12. SYNTHROID [Concomitant]
  13. CALCIUM W/VITAMIN D NOS [Concomitant]
  14. MULTI-VITAMIN [Concomitant]
  15. PERCOCET [Concomitant]
  16. URSODIOL [Concomitant]

REACTIONS (4)
  - FALL [None]
  - CARDIAC DISORDER [None]
  - PNEUMONIA [None]
  - CERVICAL VERTEBRAL FRACTURE [None]
